FAERS Safety Report 19544823 (Version 2)
Quarter: 2021Q3

REPORT INFORMATION
  Report Type: Spontaneous
  Country: US (occurrence: US)
  Receive Date: 20210714
  Receipt Date: 20210816
  Transmission Date: 20211014
  Serious: No
  Sender: FDA-Public Use
  Company Number: US-ASTRAZENECA-2021A528344

PATIENT
  Sex: Male
  Weight: 89.4 kg

DRUGS (2)
  1. IMFINZI [Suspect]
     Active Substance: DURVALUMAB
     Indication: LUNG DISORDER
     Dosage: EVERY TWO WEEKS
     Route: 042
     Dates: start: 202009
  2. BLOOD PRESSURE MEDICAION [Concomitant]
     Indication: BLOOD PRESSURE MEASUREMENT
     Dosage: 1/2 TABLET IN THE MORNING AND 1/2 TABLET IN THE AFTERNOON

REACTIONS (13)
  - Cough [Unknown]
  - Hyperhidrosis [Unknown]
  - Headache [Unknown]
  - Thyroid disorder [Unknown]
  - Insomnia [Unknown]
  - Thyroid hormones increased [Unknown]
  - Productive cough [Unknown]
  - Dizziness [Recovered/Resolved]
  - Polydipsia [Unknown]
  - Middle insomnia [Unknown]
  - Depression [Unknown]
  - Malaise [Unknown]
  - Confusional state [Unknown]
